FAERS Safety Report 16418888 (Version 1)
Quarter: 2019Q2

REPORT INFORMATION
  Report Type: Spontaneous
  Country: BR (occurrence: BR)
  Receive Date: 20190612
  Receipt Date: 20190612
  Transmission Date: 20190711
  Serious: Yes (Death, Other)
  Sender: FDA-Public Use
  Company Number: BR-ROCHE-2334090

PATIENT
  Age: 82 Year

DRUGS (1)
  1. ACTILYSE [Suspect]
     Active Substance: ALTEPLASE
     Indication: INFARCTION
     Route: 065

REACTIONS (3)
  - Overdose [Unknown]
  - Death [Fatal]
  - Cerebral haemorrhage [Unknown]
